FAERS Safety Report 4847837-2 (Version None)
Quarter: 2005Q4

REPORT INFORMATION
  Report Type: 
  Country: None (occurrence: None)
  Receive Date: 20051207
  Receipt Date: 20051027
  Transmission Date: 20060501
  Serious: Yes (Hospitalization)
  Sender: FDA-Public Use
  Company Number: DE-ABBOTT-05P-062-0315533-00

PATIENT
  Sex: Male
  Weight: 94 kg

DRUGS (6)
  1. KLACID FORTE TABLETS [Suspect]
     Indication: HELICOBACTER INFECTION
     Route: 048
     Dates: start: 20050802, end: 20050809
  2. AMOXICILLIN [Suspect]
     Indication: HELICOBACTER INFECTION
     Route: 048
     Dates: start: 20050802, end: 20050809
  3. LEVOCETIRIZINE DIHYDROCHLORIDE [Suspect]
     Indication: DERMATITIS CONTACT
     Route: 048
     Dates: start: 20050701, end: 20050801
  4. ALLOPURINOLE [Concomitant]
     Indication: DRUG USE FOR UNKNOWN INDICATION
     Dates: end: 20050801
  5. ATORVASTATIN CALCIUM [Concomitant]
     Indication: DRUG USE FOR UNKNOWN INDICATION
     Dates: end: 20050801
  6. PANTOPRAZOLE [Concomitant]
     Indication: HELICOBACTER INFECTION
     Route: 048
     Dates: start: 20050802, end: 20050809

REACTIONS (9)
  - BUNDLE BRANCH BLOCK LEFT [None]
  - FAECES DISCOLOURED [None]
  - GASTRITIS EROSIVE [None]
  - HEPATIC FIBROSIS [None]
  - HEPATITIS CHOLESTATIC [None]
  - HEPATITIS TOXIC [None]
  - MALAISE [None]
  - REFLUX OESOPHAGITIS [None]
  - RENAL DISORDER [None]
